FAERS Safety Report 16242822 (Version 1)
Quarter: 2019Q2

REPORT INFORMATION
  Report Type: Spontaneous
  Country: BR (occurrence: BR)
  Receive Date: 20190426
  Receipt Date: 20190426
  Transmission Date: 20190711
  Serious: Yes (Other)
  Sender: FDA-Public Use
  Company Number: BR-ROCHE-2307265

PATIENT
  Age: 59 Year
  Sex: Female

DRUGS (4)
  1. CLONAZEPAM. [Suspect]
     Active Substance: CLONAZEPAM
     Indication: INSOMNIA
     Dosage: AT NIGHT
     Route: 065
  2. VALIUM [Suspect]
     Active Substance: DIAZEPAM
     Indication: INSOMNIA
     Route: 065
  3. METHOTREXATE. [Concomitant]
     Active Substance: METHOTREXATE
  4. ENBREL [Concomitant]
     Active Substance: ETANERCEPT
     Route: 065

REACTIONS (5)
  - Intentional product use issue [Unknown]
  - Haematemesis [Unknown]
  - Dysphonia [Not Recovered/Not Resolved]
  - Off label use [Unknown]
  - Product use in unapproved indication [Unknown]

NARRATIVE: CASE EVENT DATE: 20190407
